FAERS Safety Report 9423769 (Version 1)
Quarter: 2013Q3

REPORT INFORMATION
  Report Type: Spontaneous
  Country: CA (occurrence: CA)
  Receive Date: 20130728
  Receipt Date: 20130728
  Transmission Date: 20140515
  Serious: Yes (Hospitalization, Other)
  Sender: FDA-Public Use
  Company Number: CA-TEVA-421091USA

PATIENT
  Sex: 0

DRUGS (4)
  1. CARBAMAZEPINE [Suspect]
     Route: 064
  2. CLOBAZAM [Suspect]
     Route: 064
  3. GABAPENTIN [Suspect]
     Route: 064
  4. VIGABATRIN [Suspect]
     Route: 064

REACTIONS (3)
  - Neonatal behavioural syndrome [Recovered/Resolved]
  - Withdrawal syndrome [Recovered/Resolved]
  - Foetal exposure during pregnancy [Recovered/Resolved]
